FAERS Safety Report 9495049 (Version 2)
Quarter: 2013Q4

REPORT INFORMATION
  Report Type: Spontaneous
  Country: US (occurrence: None)
  Receive Date: 20130828
  Receipt Date: 20131002
  Transmission Date: 20140711
  Serious: Yes (Hospitalization, Other)
  Sender: FDA-Public Use
  Company Number: JPI-P-034811

PATIENT
  Age: 36 Year
  Sex: Female
  Weight: 81.4 kg

DRUGS (5)
  1. XYREM (SODIUM OXYBATE) ORAL SOLUTION, 500MG/ML [Suspect]
     Indication: NARCOLEPSY
     Route: 048
     Dates: start: 20110412
  2. PROVIGIL [Concomitant]
  3. FLUTICASONE W/ SALMETEROL [Concomitant]
  4. ALBUTEROL [Concomitant]
  5. ANTIEMETICS AND ANTINAUSEANTS [Concomitant]

REACTIONS (7)
  - Aphagia [None]
  - Colonic pseudo-obstruction [None]
  - Small intestinal obstruction [None]
  - Iatrogenic injury [None]
  - Colostomy [None]
  - Intestinal perforation [None]
  - Large intestinal obstruction [None]
